FAERS Safety Report 13318468 (Version 1)
Quarter: 2017Q1

REPORT INFORMATION
  Report Type: Report from Study
  Country: BR (occurrence: BR)
  Receive Date: 20170310
  Receipt Date: 20170310
  Transmission Date: 20170428
  Serious: Yes (Disabling, Other)
  Sender: FDA-Public Use
  Company Number: BR-JNJFOC-20170307228

PATIENT
  Sex: Male

DRUGS (1)
  1. INVEGA SUSTENNA [Suspect]
     Active Substance: PALIPERIDONE PALMITATE
     Indication: SCHIZOPHRENIA
     Route: 030
     Dates: start: 20161101

REACTIONS (9)
  - Agitation [Unknown]
  - Drooling [Unknown]
  - Fatigue [Unknown]
  - Speech disorder [Unknown]
  - Muscular weakness [Unknown]
  - Salivary hypersecretion [Unknown]
  - Dyskinesia [Unknown]
  - Somnolence [Unknown]
  - Dysphagia [Unknown]

NARRATIVE: CASE EVENT DATE: 2017
